FAERS Safety Report 6445603-8 (Version None)
Quarter: 2009Q4

REPORT INFORMATION
  Report Type: 
  Country: None (occurrence: None)
  Receive Date: 20091118
  Receipt Date: 20091118
  Transmission Date: 20100525
  Serious: Yes (Other)
  Sender: FDA-Public Use
  Company Number: None

PATIENT
  Sex: Female
  Weight: 53.5244 kg

DRUGS (2)
  1. CIPRO XR [Suspect]
     Indication: CYSTITIS
     Dosage: 3 1 DAILY - 3 DAYS ORAL
     Route: 048
     Dates: start: 20090624
  2. CIPRO XR [Suspect]
     Indication: CYSTITIS
     Dosage: 3 1 DAILY - 3 DAYS ORAL
     Route: 048
     Dates: start: 20090626

REACTIONS (5)
  - GAIT DISTURBANCE [None]
  - JOINT SWELLING [None]
  - OEDEMA PERIPHERAL [None]
  - PAIN IN EXTREMITY [None]
  - TENDON DISORDER [None]
